FAERS Safety Report 15889617 (Version 1)
Quarter: 2019Q1

REPORT INFORMATION
  Report Type: Spontaneous
  Country: US (occurrence: US)
  Receive Date: 20190109
  Receipt Date: 20190109
  Transmission Date: 20190417
  Serious: No
  Sender: FDA-Public Use
  Company Number: None

PATIENT
  Age: 44 Year
  Sex: Female

DRUGS (20)
  1. DOXYCYCL HYC [Concomitant]
  2. OCALIVA [Suspect]
     Active Substance: OBETICHOLIC ACID
     Indication: PRIMARY BILIARY CHOLANGITIS
     Route: 048
     Dates: start: 20180531
  3. FLUTICASONE. [Concomitant]
     Active Substance: FLUTICASONE
  4. RISPERIDONE. [Concomitant]
     Active Substance: RISPERIDONE
  5. VENLAFAXINE [Concomitant]
     Active Substance: VENLAFAXINE HYDROCHLORIDE
  6. LAMOTRIGINE. [Concomitant]
     Active Substance: LAMOTRIGINE
  7. METOPROL TAR [Concomitant]
  8. LAMOTRIGINE. [Concomitant]
     Active Substance: LAMOTRIGINE
  9. LATUDA [Concomitant]
     Active Substance: LURASIDONE HYDROCHLORIDE
  10. MOROLET [Concomitant]
  11. ASPIRIN. [Concomitant]
     Active Substance: ASPIRIN
  12. URSODIOL. [Concomitant]
     Active Substance: URSODIOL
  13. COLCHICINE. [Concomitant]
     Active Substance: COLCHICINE
  14. LEVOTHYROXIN [Concomitant]
     Active Substance: LEVOTHYROXINE
  15. CONTOUR [Concomitant]
  16. TRIAM/HCTZ [Concomitant]
     Active Substance: HYDROCHLOROTHIAZIDE\TRIAMTERENE
  17. TOBRAMYCIN. [Concomitant]
     Active Substance: TOBRAMYCIN
  18. TRAZODONE [Concomitant]
     Active Substance: TRAZODONE HYDROCHLORIDE
  19. VENTOLIN HFA AER [Concomitant]
  20. OCALIVA [Concomitant]
     Active Substance: OBETICHOLIC ACID

REACTIONS (2)
  - Mental disorder [None]
  - Product dose omission [None]

NARRATIVE: CASE EVENT DATE: 20190107
